FAERS Safety Report 15978051 (Version 1)
Quarter: 2019Q1

REPORT INFORMATION
  Report Type: Spontaneous
  Country: US (occurrence: US)
  Receive Date: 20190218
  Receipt Date: 20190218
  Transmission Date: 20190418
  Serious: No
  Sender: FDA-Public Use
  Company Number: US-SA-2019SA042906

PATIENT
  Age: 36 Year
  Sex: Female
  Weight: 77.11 kg

DRUGS (9)
  1. METHYLPREDNISOLONE. [Concomitant]
     Active Substance: METHYLPREDNISOLONE
     Dosage: 124 MG
     Route: 065
     Dates: start: 20180518
  2. CEREZYME [Suspect]
     Active Substance: IMIGLUCERASE
     Indication: FABRY^S DISEASE
     Dosage: 62.2 UNITS/KG; EVERY TWO WEEKS
     Route: 041
     Dates: start: 20100217
  3. DIPHENHYDRAMINE. [Concomitant]
     Active Substance: DIPHENHYDRAMINE
     Indication: ANAPHYLACTIC REACTION
     Dosage: 50 MG, UNK
     Route: 042
     Dates: start: 20180518
  4. NORMAL SALINE [Concomitant]
     Active Substance: SODIUM CHLORIDE
     Indication: FLUSHING
     Dosage: UNK
     Route: 065
     Dates: start: 20180518
  5. PRENATAL VITAMINS [MINERALS NOS;VITAMINS NOS] [Concomitant]
     Active Substance: MINERALS\VITAMINS
     Dosage: 1 TAB; DAILY
     Route: 048
     Dates: start: 20180408
  6. SODIUM CHLORIDE. [Concomitant]
     Active Substance: SODIUM CHLORIDE
     Indication: FLUSHING
     Dosage: 0.9 %
     Route: 042
     Dates: start: 20180518
  7. STERILE WATER [Concomitant]
     Active Substance: WATER
     Dosage: 1 EACH AS DIRECTED
     Route: 042
     Dates: start: 20180518
  8. EPINEPHRINE. [Concomitant]
     Active Substance: EPINEPHRINE
     Indication: ANAPHYLACTIC REACTION
     Dosage: 0.3 MG
     Route: 065
     Dates: start: 20180518
  9. CYMBALTA [Concomitant]
     Active Substance: DULOXETINE HYDROCHLORIDE
     Dosage: 1 CAP; DAILY
     Route: 048
     Dates: start: 20130109

REACTIONS (1)
  - Infusion related reaction [Unknown]
